FAERS Safety Report 8029073-4 (Version None)
Quarter: 2012Q1

REPORT INFORMATION
  Report Type: 
  Country: None (occurrence: None)
  Receive Date: 20120106
  Receipt Date: 20111230
  Transmission Date: 20120608
  Serious: Yes (Other)
  Sender: FDA-Public Use
  Company Number: US-ASTRAZENECA-2011SE41704

PATIENT
  Age: 63 Year
  Sex: Female

DRUGS (3)
  1. NEXIUM [Suspect]
     Route: 048
  2. TOPROL-XL [Suspect]
     Route: 048
  3. DUOGESIC [Concomitant]

REACTIONS (5)
  - FALL [None]
  - JOINT INJURY [None]
  - ROTATOR CUFF SYNDROME [None]
  - LIMB INJURY [None]
  - CONFUSIONAL STATE [None]
